FAERS Safety Report 8453968 (Version 3)
Quarter: 2014Q1

REPORT INFORMATION
  Report Type: Spontaneous
  Country: US (occurrence: US)
  Receive Date: 20120312
  Receipt Date: 20140320
  Transmission Date: 20141002
  Serious: Yes (Hospitalization)
  Sender: FDA-Public Use
  Company Number: US-BAYER-2012-023479

PATIENT
  Age: 17 Year
  Sex: Female
  Weight: 91 kg

DRUGS (15)
  1. YAZ [Suspect]
     Dosage: UNK
     Dates: start: 200802, end: 2010
  2. OCELLA [Suspect]
     Dosage: UNK
     Dates: start: 200802, end: 201002
  3. MOTRIN [Concomitant]
     Dosage: AS NEEDED
  4. MULTIVITAMIN [Concomitant]
     Dosage: AS NEEDED
  5. ALBUTEROL [Concomitant]
     Dosage: AS NEEDED
  6. GARDASIL [Concomitant]
  7. ZOLOFT [Concomitant]
  8. AMBIEN [Concomitant]
  9. NUVARING [Concomitant]
  10. LEXAPRO [Concomitant]
  11. VICODIN [Concomitant]
     Indication: PAIN
  12. WELLBUTRIN [Concomitant]
  13. ABILIFY [Concomitant]
  14. LUNESTA [Concomitant]
  15. TRAZODONE [Concomitant]

REACTIONS (4)
  - Cholelithiasis [None]
  - Cholecystitis chronic [None]
  - Mental disorder [None]
  - Depression [None]
